FAERS Safety Report 23437928 (Version 1)
Quarter: 2024Q1

REPORT INFORMATION
  Report Type: Spontaneous
  Country: CA (occurrence: None)
  Receive Date: 20240124
  Receipt Date: 20240124
  Transmission Date: 20240410
  Serious: Yes (Other)
  Sender: FDA-Public Use
  Company Number: CA-PFIZER INC-202400021183

PATIENT
  Age: 56 Year
  Sex: Female

DRUGS (5)
  1. METHOTREXATE [Suspect]
     Active Substance: METHOTREXATE
     Indication: Product used for unknown indication
  2. METHOTREXATE [Suspect]
     Active Substance: METHOTREXATE
  3. ERELZI [Suspect]
     Active Substance: ETANERCEPT-SZZS
     Indication: Product used for unknown indication
  4. ENBREL [Concomitant]
     Active Substance: ETANERCEPT
  5. SIMPONI [Concomitant]
     Active Substance: GOLIMUMAB

REACTIONS (3)
  - Cholecystectomy [Unknown]
  - Diverticulitis [Unknown]
  - Hernia [Unknown]
